FAERS Safety Report 21733638 (Version 2)
Quarter: 2023Q1

REPORT INFORMATION
  Report Type: Spontaneous
  Country: US (occurrence: US)
  Receive Date: 20221215
  Receipt Date: 20230309
  Transmission Date: 20230418
  Serious: Yes (Other)
  Sender: FDA-Public Use
  Company Number: US-BRISTOL-MYERS SQUIBB COMPANY-2022-150914

PATIENT
  Age: 77 Year
  Sex: Female

DRUGS (3)
  1. ORENCIA [Suspect]
     Active Substance: ABATACEPT
     Indication: Mixed connective tissue disease
     Dosage: DOSE : UNAVAILABLE;     FREQ : ONCE MONTHLY INFUSION
     Route: 042
     Dates: start: 202103
  2. SYNTHROID [Concomitant]
     Active Substance: LEVOTHYROXINE SODIUM
     Indication: Product used for unknown indication
  3. COPD [Concomitant]
     Indication: Product used for unknown indication

REACTIONS (4)
  - Haemarthrosis [Unknown]
  - Haematoma [Unknown]
  - Off label use [Unknown]
  - Rheumatoid arthritis [Unknown]
